FAERS Safety Report 15676595 (Version 2)
Quarter: 2019Q3

REPORT INFORMATION
  Report Type: Spontaneous
  Country: US (occurrence: US)
  Receive Date: 20181130
  Receipt Date: 20190816
  Transmission Date: 20191004
  Serious: Yes (Other)
  Sender: FDA-Public Use
  Company Number: US-SA-2017SA261481

PATIENT
  Age: 44 Year
  Sex: Female
  Weight: 81 kg

DRUGS (12)
  1. TEMAZEPAM. [Concomitant]
     Active Substance: TEMAZEPAM
  2. VICODIN [Concomitant]
     Active Substance: ACETAMINOPHEN\HYDROCODONE BITARTRATE
  3. TAMOXIFEN [Concomitant]
     Active Substance: TAMOXIFEN
  4. COUMADIN [Concomitant]
     Active Substance: WARFARIN SODIUM
  5. VALIUM [Concomitant]
     Active Substance: DIAZEPAM
  6. TAXOTERE [Suspect]
     Active Substance: DOCETAXEL
     Dosage: 70 MG, QW
     Route: 042
     Dates: start: 20070611, end: 20070611
  7. POTASSIUM CHLORIDE. [Concomitant]
     Active Substance: POTASSIUM CHLORIDE
  8. TAXOTERE [Suspect]
     Active Substance: DOCETAXEL
     Indication: BREAST CANCER FEMALE
     Dosage: 70 MG, QW
     Route: 042
     Dates: start: 20070323, end: 20070323
  9. AMITRIPTYLINE [Concomitant]
     Active Substance: AMITRIPTYLINE
  10. NEOSAR [Concomitant]
     Active Substance: CYCLOPHOSPHAMIDE
     Indication: BREAST CANCER FEMALE
  11. DOXORUBICIN [Concomitant]
     Active Substance: DOXORUBICIN
     Indication: BREAST CANCER FEMALE
  12. LASIX [Concomitant]
     Active Substance: FUROSEMIDE

REACTIONS (2)
  - Psychological trauma [Unknown]
  - Alopecia [Recovering/Resolving]

NARRATIVE: CASE EVENT DATE: 200802
